FAERS Safety Report 23439799 (Version 1)
Quarter: 2024Q1

REPORT INFORMATION
  Report Type: Spontaneous
  Country: US (occurrence: US)
  Receive Date: 20240124
  Receipt Date: 20240124
  Transmission Date: 20240409
  Serious: No
  Sender: FDA-Public Use
  Company Number: US-LEX-000118

PATIENT
  Sex: Male

DRUGS (1)
  1. INPEFA [Suspect]
     Active Substance: SOTAGLIFLOZIN
     Indication: Cardiomyopathy
     Route: 065
     Dates: start: 20231208, end: 20231222

REACTIONS (2)
  - Fungal infection [Unknown]
  - Off label use [Unknown]
